FAERS Safety Report 16880323 (Version 1)
Quarter: 2019Q4

REPORT INFORMATION
  Report Type: Spontaneous
  Country: US (occurrence: US)
  Receive Date: 20191003
  Receipt Date: 20191003
  Transmission Date: 20200122
  Serious: No
  Sender: FDA-Public Use
  Company Number: US-TEVA-2019-US-1117206

PATIENT
  Age: 83 Year
  Sex: Female

DRUGS (2)
  1. MUCUS D [Suspect]
     Active Substance: GUAIFENESIN\PSEUDOEPHEDRINE HYDROCHLORIDE
     Dosage: 1 TABLET, QD, PRN;
     Route: 048
  2. MUCUS D [Suspect]
     Active Substance: GUAIFENESIN\PSEUDOEPHEDRINE HYDROCHLORIDE
     Indication: UPPER RESPIRATORY TRACT CONGESTION
     Dosage: 2 TABLETS QD
     Route: 048

REACTIONS (5)
  - Underdose [Unknown]
  - Nausea [Recovering/Resolving]
  - Pain [Unknown]
  - Incorrect product administration duration [Unknown]
  - Sinus congestion [Recovering/Resolving]

NARRATIVE: CASE EVENT DATE: 20190924
